FAERS Safety Report 11917800 (Version 1)
Quarter: 2016Q1

REPORT INFORMATION
  Report Type: Report from Study
  Country: US (occurrence: US)
  Receive Date: 20160114
  Receipt Date: 20160114
  Transmission Date: 20160526
  Serious: Yes (Death, Hospitalization)
  Sender: FDA-Public Use
  Company Number: US-TARO-2016TAR00025

PATIENT
  Age: 72 Year
  Sex: Male

DRUGS (3)
  1. BLINDED PLACEBO [Suspect]
     Active Substance: INVESTIGATIONAL PRODUCT
     Indication: ACTINIC KERATOSIS
     Dosage: 250 MG, 3X/WEEK
     Route: 061
     Dates: start: 20150826, end: 20151113
  2. ALDARA [Suspect]
     Active Substance: IMIQUIMOD
     Indication: ACTINIC KERATOSIS
     Dosage: 250 MG, 3X/WEEK
     Route: 061
     Dates: start: 20150826, end: 20151113
  3. BLINDED IMIQUIMOD CREAM 5% (BA/BE) [Suspect]
     Active Substance: IMIQUIMOD
     Indication: ACTINIC KERATOSIS
     Dosage: 250 MG, 3X/WEEK
     Route: 061
     Dates: start: 20150826, end: 20151113

REACTIONS (4)
  - Back pain [Unknown]
  - Acute kidney injury [Unknown]
  - Myocardial infarction [Fatal]
  - Renal colic [None]

NARRATIVE: CASE EVENT DATE: 20151230
